FAERS Safety Report 8338067-0 (Version None)
Quarter: 2012Q2

REPORT INFORMATION
  Report Type: 
  Country: None (occurrence: None)
  Receive Date: 20120504
  Receipt Date: 20120427
  Transmission Date: 20120825
  Serious: Yes (Death, Other)
  Sender: FDA-Public Use
  Company Number: JP-EISAI INC-E7389-01417-SPO-JP

PATIENT
  Sex: Female
  Weight: 39 kg

DRUGS (3)
  1. HALAVEN [Suspect]
     Indication: BREAST CANCER RECURRENT
     Route: 041
     Dates: start: 20110812, end: 20110812
  2. ALDACTONE [Concomitant]
     Route: 048
     Dates: start: 20110705, end: 20110819
  3. LASIX [Concomitant]
     Route: 048
     Dates: start: 20110705, end: 20110819

REACTIONS (3)
  - NEUTROPENIA [None]
  - DISSEMINATED INTRAVASCULAR COAGULATION [None]
  - LEUKOPENIA [None]
